FAERS Safety Report 10376306 (Version 1)
Quarter: 2014Q3

REPORT INFORMATION
  Report Type: Spontaneous
  Country: US (occurrence: None)
  Receive Date: 20140731
  Receipt Date: 20140731
  Transmission Date: 20150326
  Serious: Yes (Life-Threatening)
  Sender: FDA-Public Use
  Company Number: 226472LEO

PATIENT
  Age: 74 Year
  Sex: Male

DRUGS (3)
  1. PICATO [Suspect]
     Active Substance: INGENOL MEBUTATE
     Indication: ACTINIC KERATOSIS
     Route: 061
  2. LACTULOSE. [Concomitant]
     Active Substance: LACTULOSE
  3. SALBUTAMOL [Concomitant]
     Active Substance: ALBUTEROL

REACTIONS (2)
  - Tumour ulceration [None]
  - Neuroendocrine carcinoma of the skin [None]

NARRATIVE: CASE EVENT DATE: 20140227
